FAERS Safety Report 8105811-7 (Version None)
Quarter: 2012Q1

REPORT INFORMATION
  Report Type: 
  Country: None (occurrence: None)
  Receive Date: 20120201
  Receipt Date: 20120120
  Transmission Date: 20120608
  Serious: Yes (Life-Threatening, Hospitalization)
  Sender: FDA-Public Use
  Company Number: JP-BRISTOL-MYERS SQUIBB COMPANY-14528392

PATIENT
  Age: 31 Year
  Sex: Male

DRUGS (14)
  1. EFAVIRENZ [Suspect]
     Indication: HIV INFECTION
     Dosage: THERAPY START DATE: 25-APR-2005
     Route: 048
     Dates: start: 20050425, end: 20080713
  2. ZERIT [Suspect]
     Indication: HIV INFECTION
     Route: 048
     Dates: start: 19981221, end: 20050424
  3. TRUVADA [Suspect]
     Indication: HIV INFECTION
     Dosage: TABS; THERAPY START DATE: 24-MAY-2005
     Route: 048
     Dates: start: 20050524
  4. RABEPRAZOLE SODIUM [Concomitant]
     Indication: GASTRITIS
     Dosage: TAB
     Route: 048
     Dates: end: 20080323
  5. CYSTEINE [Concomitant]
     Indication: HEPATITIS C
     Dosage: DOSE NOT CHANGED. 3.
     Route: 042
     Dates: start: 20070418
  6. GLYCYRRHIZINIC ACID [Concomitant]
     Indication: HEPATITIS C
     Dosage: DOSE NOT CHANGED. 3.
     Route: 042
     Dates: start: 20070418
  7. NORVIR [Suspect]
     Indication: HIV INFECTION
     Dosage: CAP.ALSO NORVIR SOFT 100MG 1DAY ON 14JUL08-UNK
     Route: 048
     Dates: start: 20040728, end: 20050424
  8. LAMIVUDINE [Suspect]
     Indication: HIV INFECTION
     Dosage: 150 MG ON 29DEC97-24MAY05 300(1DAY) MG ON 25APR05-23MAY05.TAB
     Route: 048
     Dates: start: 19971229, end: 20050523
  9. GLYCINE [Concomitant]
     Indication: HEPATITIS C
     Dosage: DOSE NOT CHANGED.3.
     Route: 042
     Dates: start: 20070418
  10. VIREAD [Suspect]
     Indication: HIV INFECTION
     Dosage: TAB.
     Route: 048
     Dates: start: 20050425, end: 20050523
  11. REYATAZ [Suspect]
     Indication: HIV INFECTION
     Dosage: DIVIDED DOSE FREQUENCY U.ALSO 300MG PER 1D ON 28JUL04-24MAY05.
     Route: 048
     Dates: start: 20040130, end: 20040727
  12. KOGENATE [Concomitant]
     Indication: HAEMOPHILIA
     Dosage: 1 DOSAGE FORM=1000 MILLION UNIT; 1-3TIMES/MONTH;INJ.DOSE NOT CHANGED.ASLO KOGENATE-FS ON 12APR05.
     Route: 042
     Dates: start: 20050401, end: 20050411
  13. OCTOCOG ALPHA [Concomitant]
     Indication: HAEMOPHILIA
  14. AMMONIUM GLYCYRRHIZINATE [Concomitant]
     Dates: start: 20070418

REACTIONS (3)
  - HEPATIC CIRRHOSIS [None]
  - ARTHRITIS BACTERIAL [None]
  - LIVER FUNCTION TEST ABNORMAL [None]
